FAERS Safety Report 13534815 (Version 2)
Quarter: 2017Q3

REPORT INFORMATION
  Report Type: Report from Study
  Country: CN (occurrence: CN)
  Receive Date: 20170511
  Receipt Date: 20170814
  Transmission Date: 20171127
  Serious: Yes (Other)
  Sender: FDA-Public Use
  Company Number: CN-ROCHE-1893721

PATIENT

DRUGS (6)
  1. RITUXIMAB. [Suspect]
     Active Substance: RITUXIMAB
     Indication: CENTRAL NERVOUS SYSTEM LYMPHOMA
     Dosage: ON DAY 0 OF EVERY CHEMOTHERAPY CYCLE
     Route: 042
  2. DEXAMETHASONE. [Suspect]
     Active Substance: DEXAMETHASONE
     Indication: CENTRAL NERVOUS SYSTEM LYMPHOMA
     Dosage: 5-10 MG ON DAYS 1, 2 AND 3
     Route: 042
  3. LEUCOVORIN. [Concomitant]
     Active Substance: LEUCOVORIN
     Route: 065
  4. DEXAMETHASONE. [Suspect]
     Active Substance: DEXAMETHASONE
     Dosage: FOR 3 DAYS (DAY 0, DAY 1, AND DAY 2) DURING CONSOLIDATION CHEMOTHERAPY
     Route: 048
  5. METHOTREXATE. [Suspect]
     Active Substance: METHOTREXATE
     Indication: CENTRAL NERVOUS SYSTEM LYMPHOMA
     Dosage: 3.5 G/M2 ON DAY 1
     Route: 042
  6. CYTARABINE. [Suspect]
     Active Substance: CYTARABINE
     Indication: CENTRAL NERVOUS SYSTEM LYMPHOMA
     Dosage: 0.5-1 G/M2 ON DAY 2
     Route: 042

REACTIONS (15)
  - Anaphylactic reaction [Unknown]
  - Mucosal inflammation [Unknown]
  - Constipation [Unknown]
  - Blood creatinine increased [Unknown]
  - Stomatitis [Unknown]
  - Nausea [Unknown]
  - Neutropenia [Unknown]
  - Anaemia [Unknown]
  - Thrombocytopenia [Unknown]
  - Decreased appetite [Unknown]
  - Diarrhoea [Unknown]
  - Leukoencephalopathy [Unknown]
  - Infection [Unknown]
  - Alanine aminotransferase increased [Unknown]
  - Vomiting [Unknown]
